FAERS Safety Report 10567749 (Version 1)
Quarter: 2014Q4

REPORT INFORMATION
  Report Type: Spontaneous
  Country: US (occurrence: US)
  Receive Date: 20141106
  Receipt Date: 20141106
  Transmission Date: 20150529
  Serious: Yes (Hospitalization)
  Sender: FDA-Public Use
  Company Number: US-SUN PHARMACEUTICAL INDUSTRIES LTD-2014SUN02468

PATIENT
  Age: 59 Year
  Sex: Female

DRUGS (6)
  1. ANASTRAZOLE [Concomitant]
     Active Substance: ANASTROZOLE
     Indication: INVASIVE DUCTAL BREAST CARCINOMA
     Dosage: DAILY
     Route: 065
  2. DOCETAXEL. [Suspect]
     Active Substance: DOCETAXEL
     Indication: METASTASES TO BONE
  3. DENOSUMAB [Concomitant]
     Active Substance: DENOSUMAB
     Indication: METASTASES TO BONE
  4. DENOSUMAB [Concomitant]
     Active Substance: DENOSUMAB
     Indication: INVASIVE DUCTAL BREAST CARCINOMA
     Dosage: MONTHLY DOSE
     Route: 065
  5. ANASTRAZOLE [Concomitant]
     Active Substance: ANASTROZOLE
     Indication: METASTASES TO BONE
  6. DOCETAXEL. [Suspect]
     Active Substance: DOCETAXEL
     Indication: INVASIVE DUCTAL BREAST CARCINOMA
     Dosage: EVERY 3 WEEKS
     Route: 065

REACTIONS (3)
  - Lacrimation increased [Recovering/Resolving]
  - Eyelid oedema [Recovering/Resolving]
  - Vision blurred [Recovering/Resolving]
